FAERS Safety Report 15920935 (Version 4)
Quarter: 2019Q1

REPORT INFORMATION
  Report Type: Report from Study
  Country: CA (occurrence: CA)
  Receive Date: 20190205
  Receipt Date: 20190321
  Transmission Date: 20190417
  Serious: Yes (Hospitalization)
  Sender: FDA-Public Use
  Company Number: PHHY2018CA125337

PATIENT
  Age: 65 Year
  Sex: Male

DRUGS (20)
  1. PAROXETIN [Concomitant]
     Active Substance: PAROXETINE HYDROCHLORIDE
     Indication: PRODUCT USED FOR UNKNOWN INDICATION
     Dosage: 1 DF, QD
     Route: 048
     Dates: start: 201712
  2. XOLAIR [Suspect]
     Active Substance: OMALIZUMAB
     Dosage: 375 MG, BIW
     Route: 058
     Dates: start: 20181204
  3. XOLAIR [Suspect]
     Active Substance: OMALIZUMAB
     Dosage: 375 MG, BIW
     Route: 058
     Dates: start: 20190104
  4. ATORVASTATIN [Concomitant]
     Active Substance: ATORVASTATIN
     Indication: BLOOD CHOLESTEROL INCREASED
     Dosage: 1 DF, QD
     Route: 048
     Dates: start: 2015
  5. PREDNISONE. [Concomitant]
     Active Substance: PREDNISONE
     Indication: ASTHMA
     Dosage: 1 DF, QD
     Route: 048
     Dates: start: 201806
  6. VENTOLIN [Concomitant]
     Active Substance: ALBUTEROL SULFATE
     Indication: ASTHMA
     Dosage: 2 DF, QID
     Route: 055
     Dates: start: 1998
  7. SPIRIVA [Concomitant]
     Active Substance: TIOTROPIUM BROMIDE MONOHYDRATE
     Indication: ASTHMA
     Dosage: 2 DF, QD
     Route: 055
     Dates: start: 2014
  8. XOLAIR [Suspect]
     Active Substance: OMALIZUMAB
     Dosage: 375 MG, BIW
     Route: 058
     Dates: start: 20190118
  9. TRAZODONE [Concomitant]
     Active Substance: TRAZODONE HYDROCHLORIDE
     Indication: PRODUCT USED FOR UNKNOWN INDICATION
     Dosage: 1 DF, QD
     Route: 048
     Dates: start: 2018
  10. XOLAIR [Suspect]
     Active Substance: OMALIZUMAB
     Dosage: 375 MG, BIW
     Route: 058
     Dates: start: 20190311
  11. XOLAIR [Suspect]
     Active Substance: OMALIZUMAB
     Dosage: 375 MG, BIW
     Route: 058
     Dates: start: 20190129
  12. SINGULAIR [Concomitant]
     Active Substance: MONTELUKAST SODIUM
     Indication: ASTHMA
     Dosage: 1 DF, QD
     Route: 048
     Dates: start: 201709
  13. XOLAIR [Suspect]
     Active Substance: OMALIZUMAB
     Dosage: 375 MG, BIW
     Route: 058
     Dates: start: 20181218
  14. XOLAIR [Suspect]
     Active Substance: OMALIZUMAB
     Dosage: 375 MG, BIW
     Route: 058
     Dates: start: 20190211
  15. ZENHALE [Concomitant]
     Active Substance: FORMOTEROL FUMARATE\MOMETASONE FUROATE
     Indication: ASTHMA
     Dosage: 2 DF, QID
     Route: 055
     Dates: start: 201709
  16. ASA [Concomitant]
     Active Substance: ASPIRIN
     Indication: PRODUCT USED FOR UNKNOWN INDICATION
     Dosage: 1 DF, QD
     Route: 048
     Dates: start: 2015
  17. XOLAIR [Suspect]
     Active Substance: OMALIZUMAB
     Indication: ASTHMA
     Dosage: 375 MG, BIW
     Route: 058
     Dates: start: 20181009
  18. XOLAIR [Suspect]
     Active Substance: OMALIZUMAB
     Dosage: 375 MG, BIW
     Route: 058
     Dates: start: 20181120
  19. LORAZEPAM. [Concomitant]
     Active Substance: LORAZEPAM
     Indication: ANXIETY
     Dosage: 1 DF, QD
     Route: 048
     Dates: start: 2003
  20. OXAZEPAM. [Concomitant]
     Active Substance: OXAZEPAM
     Indication: ANXIETY
     Dosage: 1 DF, QD
     Route: 048
     Dates: start: 201807

REACTIONS (26)
  - Sputum retention [Unknown]
  - Laziness [Unknown]
  - Dizziness [Recovering/Resolving]
  - Nasopharyngitis [Unknown]
  - Heart rate increased [Unknown]
  - Myopia [Unknown]
  - Acne [Unknown]
  - Neck pain [Unknown]
  - Muscle spasms [Unknown]
  - Pain [Unknown]
  - Bronchitis [Unknown]
  - Blood pressure systolic increased [Recovering/Resolving]
  - Vision blurred [Recovering/Resolving]
  - Back pain [Unknown]
  - Asthma [Unknown]
  - Blood cholesterol increased [Unknown]
  - Rhinorrhoea [Not Recovered/Not Resolved]
  - Dyspnoea [Not Recovered/Not Resolved]
  - Asthenia [Unknown]
  - Abscess oral [Unknown]
  - Dermatitis contact [Unknown]
  - Fatigue [Recovering/Resolving]
  - Abdominal pain [Unknown]
  - Pruritus [Unknown]
  - Headache [Recovering/Resolving]
  - Drug ineffective [Unknown]

NARRATIVE: CASE EVENT DATE: 20181009
